FAERS Safety Report 13820652 (Version 1)
Quarter: 2017Q3

REPORT INFORMATION
  Report Type: Spontaneous
  Country: JP (occurrence: JP)
  Receive Date: 20170801
  Receipt Date: 20170801
  Transmission Date: 20171127
  Serious: Yes (Other)
  Sender: FDA-Public Use
  Company Number: PHHY2017JP112110

PATIENT
  Age: 73 Year
  Sex: Male

DRUGS (6)
  1. OXALIPLATIN. [Suspect]
     Active Substance: OXALIPLATIN
     Indication: COLORECTAL CANCER
     Dosage: 320 MG/M2, UNK, DAY 1
     Route: 040
  2. CALCIUM LEVOFOLINATE [Suspect]
     Active Substance: LEVOLEUCOVORIN CALCIUM
     Dosage: 1200 MG/M2, UNK, DAY 1 AND DAY 2
     Route: 041
  3. CALCIUM LEVOFOLINATE [Suspect]
     Active Substance: LEVOLEUCOVORIN CALCIUM
     Indication: COLORECTAL CANCER
     Dosage: 320 MG/M2, UNK, DAY 1
     Route: 040
  4. 5-FLUOROURACIL [Suspect]
     Active Substance: FLUOROURACIL
     Indication: COLORECTAL CANCER
     Dosage: 320 MG/M2, UNK, DAY 1
     Route: 040
  5. 5-FLUOROURACIL [Suspect]
     Active Substance: FLUOROURACIL
     Dosage: 1200 MG/M2, UNK, DAY1 AND DAY 2
     Route: 041
  6. OXALIPLATIN. [Suspect]
     Active Substance: OXALIPLATIN
     Dosage: 1200 MG/M2, UNK, DAY 1 AND DAY 2
     Route: 041

REACTIONS (1)
  - Encephalopathy [Recovered/Resolved]
